FAERS Safety Report 25478552 (Version 1)
Quarter: 2025Q2

REPORT INFORMATION
  Report Type: Spontaneous
  Country: US (occurrence: US)
  Receive Date: 20250625
  Receipt Date: 20250625
  Transmission Date: 20250717
  Serious: Yes (Other)
  Sender: AMGEN
  Company Number: US-AMGEN-USASP2025123352

PATIENT
  Age: 71 Year
  Sex: Female

DRUGS (27)
  1. PREDNISONE [Suspect]
     Active Substance: PREDNISONE
     Indication: Product used for unknown indication
     Route: 065
  2. HYZAAR [Concomitant]
     Active Substance: HYDROCHLOROTHIAZIDE\LOSARTAN POTASSIUM
     Route: 065
  3. HIPREX [Concomitant]
     Active Substance: METHENAMINE HIPPURATE
     Route: 065
  4. PRILOSEC [Concomitant]
     Active Substance: OMEPRAZOLE MAGNESIUM
     Route: 065
  5. CRESTOR [Concomitant]
     Active Substance: ROSUVASTATIN CALCIUM
     Route: 065
  6. SYNTHROID [Concomitant]
     Active Substance: LEVOTHYROXINE SODIUM
     Route: 065
  7. VITAMIN B12 [Concomitant]
     Active Substance: CYANOCOBALAMIN
     Route: 048
  8. ZOFRAN [Concomitant]
     Active Substance: ONDANSETRON HYDROCHLORIDE
  9. DETROL LA [Concomitant]
     Active Substance: TOLTERODINE TARTRATE
     Route: 065
  10. ANTIVERT [Concomitant]
     Active Substance: MECLIZINE HYDROCHLORIDE
     Route: 065
  11. CLARITIN-D NOS [Concomitant]
     Active Substance: LORATADINE\PSEUDOEPHEDRINE SULFATE
     Route: 065
  12. VITAMIN D3 [Concomitant]
     Active Substance: CHOLECALCIFEROL
     Route: 048
  13. PEPCID [Concomitant]
     Active Substance: FAMOTIDINE
  14. ASPIRIN [Concomitant]
     Active Substance: ASPIRIN
     Route: 065
  15. PLAVIX [Concomitant]
     Active Substance: CLOPIDOGREL BISULFATE
     Route: 065
  16. FIBER THERAPY (CALCIUM POLYCARBOPHIL) [Concomitant]
     Active Substance: CALCIUM POLYCARBOPHIL
     Route: 048
  17. DEXTRIN [Concomitant]
     Active Substance: ICODEXTRIN
     Route: 048
  18. DEMANNOSE [Concomitant]
     Active Substance: DEMANNOSE
     Route: 048
  19. MIRALAX [Concomitant]
     Active Substance: POLYETHYLENE GLYCOL 3350
     Route: 065
  20. MAGNESIUM HYDROXIDE [Concomitant]
     Active Substance: MAGNESIUM HYDROXIDE
     Route: 048
  21. ZINC [Concomitant]
     Active Substance: ZINC
     Route: 048
  22. IMURAN [Concomitant]
     Active Substance: AZATHIOPRINE
     Route: 065
  23. TAZTIA XT [Concomitant]
     Active Substance: DILTIAZEM HYDROCHLORIDE
     Route: 065
  24. TIAZAC [Concomitant]
     Active Substance: DILTIAZEM HYDROCHLORIDE
     Route: 065
  25. CLARITIN [Concomitant]
     Active Substance: LORATADINE
     Route: 065
  26. LOPRESSOR [Concomitant]
     Active Substance: METOPROLOL TARTRATE
  27. PROBIOTICS NOS [Concomitant]
     Active Substance: PROBIOTICS NOS
     Route: 048

REACTIONS (21)
  - Aortic valve incompetence [Unknown]
  - Atrial fibrillation [Unknown]
  - Autoimmune hepatitis [Unknown]
  - Idiopathic pulmonary fibrosis [Unknown]
  - Osteoporosis [Unknown]
  - Sinus tachycardia [Unknown]
  - Chest pain [Unknown]
  - Type V hyperlipidaemia [Unknown]
  - Essential hypertension [Unknown]
  - Pericardial cyst [Unknown]
  - Post procedural hypothyroidism [Unknown]
  - Osteopenia [Unknown]
  - Diverticulum intestinal [Unknown]
  - Gastrooesophageal reflux disease [Unknown]
  - Nausea [Unknown]
  - Cystitis interstitial [Unknown]
  - Hypertonic bladder [Unknown]
  - Trigger finger [Unknown]
  - Ligament sprain [Unknown]
  - Ophthalmic migraine [Unknown]
  - Dyspnoea [Unknown]
